FAERS Safety Report 23570023 (Version 1)
Quarter: 2024Q1

REPORT INFORMATION
  Report Type: Spontaneous
  Country: US (occurrence: None)
  Receive Date: 20240226
  Receipt Date: 20240226
  Transmission Date: 20240410
  Serious: Yes (Hospitalization)
  Sender: FDA-Public Use
  Company Number: None

PATIENT
  Age: 39 Year
  Sex: Male

DRUGS (10)
  1. ENBREL [Suspect]
     Active Substance: ETANERCEPT
     Indication: Ankylosing spondylitis
     Route: 058
  2. AMOXICILLIN [Concomitant]
     Active Substance: AMOXICILLIN
  3. LOSARTAN [Concomitant]
     Active Substance: LOSARTAN
  4. VITAMIN D [Concomitant]
  5. XANAX [Concomitant]
     Active Substance: ALPRAZOLAM
  6. ALLOPURINOL [Concomitant]
     Active Substance: ALLOPURINOL
  7. DULOXETINE [Concomitant]
     Active Substance: DULOXETINE
  8. ESOMEPRAZOLE MAGNESIUM [Concomitant]
     Active Substance: ESOMEPRAZOLE\ESOMEPRAZOLE MAGNESIUM\ESOMEPRAZOLE MAGNESIUM DIHYDRATE
  9. GABAPENTIN [Concomitant]
     Active Substance: GABAPENTIN
  10. PREDNISONE [Concomitant]
     Active Substance: PREDNISONE

REACTIONS (4)
  - Abdominal discomfort [None]
  - Therapy interrupted [None]
  - Clostridium difficile infection [None]
  - Pancreatitis [None]

NARRATIVE: CASE EVENT DATE: 19840225
